FAERS Safety Report 4692933-6 (Version None)
Quarter: 2005Q2

REPORT INFORMATION
  Report Type: 
  Country: None (occurrence: None)
  Receive Date: 20050615
  Receipt Date: 20050601
  Transmission Date: 20051028
  Serious: Yes (Death, Other)
  Sender: FDA-Public Use
  Company Number: USA050699477

PATIENT
  Age: 83 Year
  Sex: Female

DRUGS (1)
  1. ZYPREXA [Suspect]
     Indication: PARANOIA
     Dosage: 10 MG DAY
     Route: 048
     Dates: start: 20010301, end: 20050401

REACTIONS (1)
  - TRANSIENT ISCHAEMIC ATTACK [None]
